FAERS Safety Report 11917268 (Version 1)
Quarter: 2016Q1

REPORT INFORMATION
  Report Type: Spontaneous
  Country: FR (occurrence: FR)
  Receive Date: 20160114
  Receipt Date: 20160114
  Transmission Date: 20160526
  Serious: Yes (Hospitalization, Other)
  Sender: FDA-Public Use
  Company Number: FR-SHIRE-FR201600203

PATIENT
  Age: 38 Year
  Sex: Male

DRUGS (6)
  1. DEPAKINE CHRONO [Concomitant]
     Active Substance: VALPROATE SODIUM
     Dosage: 500 MG, 2X/DAY:BID
     Route: 065
  2. VPRIV [Suspect]
     Active Substance: VELAGLUCERASE ALFA
     Indication: GAUCHER^S DISEASE TYPE I
     Dosage: 4300 IU, 1X/2WKS (1 IN 15 DAYS)
     Route: 041
     Dates: start: 201501, end: 201507
  3. DEPAKINE CHRONO [Concomitant]
     Active Substance: VALPROATE SODIUM
     Dosage: 500 MG, OTHER(DOSE INCREASED TO 500 MG IN THE MORNING, 750 MG IN THE EVENING)
     Route: 065
     Dates: start: 201507
  4. DEPAKINE CHRONO [Concomitant]
     Active Substance: VALPROATE SODIUM
     Indication: PRODUCT USED FOR UNKNOWN INDICATION
     Dosage: 500 MG, 2X/DAY:BID (DEPAKINE CHRONO 500-ONE IN MORNING AND ONE IN EVENING)
     Route: 065
  5. KEPPRA [Concomitant]
     Active Substance: LEVETIRACETAM
     Indication: PRODUCT USED FOR UNKNOWN INDICATION
     Dosage: UNK, 2X/DAY:BID KEPPRA 500: 1.5 IN THE MORNING AND VENING)
     Route: 065
  6. KEPPRA [Concomitant]
     Active Substance: LEVETIRACETAM
     Dosage: UNK, OTHER(KEPPRA INCREASED TO 1.5 IN THE MORNING AND 2 IN THE EVENING)
     Route: 065
     Dates: start: 2015

REACTIONS (4)
  - Injury [Unknown]
  - Loss of consciousness [Unknown]
  - Fatigue [Unknown]
  - Epilepsy [Not Recovered/Not Resolved]

NARRATIVE: CASE EVENT DATE: 201501
